FAERS Safety Report 23785208 (Version 1)
Quarter: 2024Q2

REPORT INFORMATION
  Report Type: Spontaneous
  Country: IT (occurrence: IT)
  Receive Date: 20240425
  Receipt Date: 20240425
  Transmission Date: 20240716
  Serious: Yes (Life-Threatening, Hospitalization)
  Sender: FDA-Public Use
  Company Number: IT-EMA-DD-20240327-7482645-100024

PATIENT
  Age: 51 Year
  Sex: Female

DRUGS (3)
  1. EPIRUBICIN [Suspect]
     Active Substance: EPIRUBICIN
     Indication: Neoadjuvant therapy
     Dosage: UNK, CONTINUING: NO, FIRST CYCLE; EPIRUBICIN HYDROCHLORIDE
     Route: 042
     Dates: start: 20230517, end: 20230517
  2. PEMBROLIZUMAB [Suspect]
     Active Substance: PEMBROLIZUMAB
     Indication: Neoadjuvant therapy
     Dosage: UNK, CONTNUING: NO
     Route: 042
     Dates: start: 20230309, end: 20230503
  3. PEMBROLIZUMAB [Suspect]
     Active Substance: PEMBROLIZUMAB
     Indication: Neoadjuvant therapy
     Dosage: UNK, EV
     Route: 050
     Dates: start: 20230330

REACTIONS (2)
  - Febrile neutropenia [Recovered/Resolved]
  - Thrombocytopenia [Recovered/Resolved]

NARRATIVE: CASE EVENT DATE: 20230529
